FAERS Safety Report 4293402-8 (Version None)
Quarter: 2004Q1

REPORT INFORMATION
  Report Type: 
  Country: None (occurrence: None)
  Receive Date: 20040210
  Receipt Date: 20040127
  Transmission Date: 20041129
  Serious: Yes (Hospitalization)
  Sender: FDA-Public Use
  Company Number: 04P-056-0248958-00

PATIENT
  Age: 84 Year
  Sex: Male

DRUGS (7)
  1. NAXY (BIAXIN) (CLARITHROMYCIN) (CLARITHROMYCIN) [Suspect]
     Dosage: SEE IMAGE
     Route: 048
     Dates: start: 20030101, end: 20030101
  2. NAXY (BIAXIN) (CLARITHROMYCIN) (CLARITHROMYCIN) [Suspect]
     Dosage: SEE IMAGE
     Route: 048
     Dates: start: 20030926, end: 20030101
  3. CARBAMAZEPINE [Concomitant]
  4. RAMIPRIL [Concomitant]
  5. PAROXETINE [Concomitant]
  6. FUROSEMIDE [Concomitant]
  7. FLUINDIONE [Concomitant]

REACTIONS (3)
  - CONFUSIONAL STATE [None]
  - HEPATITIS [None]
  - OVERDOSE [None]
